FAERS Safety Report 14685901 (Version 1)
Quarter: 2018Q1

REPORT INFORMATION
  Report Type: Spontaneous
  Country: US (occurrence: US)
  Receive Date: 20180326
  Receipt Date: 20180326
  Transmission Date: 20180509
  Serious: No
  Sender: FDA-Public Use
  Company Number: None

PATIENT
  Age: 55 Year
  Sex: Female
  Weight: 81 kg

DRUGS (2)
  1. PROBIOTIC [Concomitant]
     Active Substance: PROBIOTICS NOS
  2. AZO URINARY TRACT DEFENSE ANTIBACTERIAL PROTECTION [Suspect]
     Active Substance: METHENAMINE\SODIUM SALICYLATE
     Indication: URINARY TRACT INFECTION
     Dosage: ?          QUANTITY:24 TABLET(S);?
     Route: 048
     Dates: start: 20180324, end: 20180324

REACTIONS (2)
  - Vascular rupture [None]
  - Intraocular pressure increased [None]

NARRATIVE: CASE EVENT DATE: 20180325
